FAERS Safety Report 10917795 (Version 1)
Quarter: 2015Q1

REPORT INFORMATION
  Report Type: Other
  Country: TW (occurrence: TW)
  Receive Date: 20150316
  Receipt Date: 20150316
  Transmission Date: 20150721
  Serious: Yes (Life-Threatening)
  Sender: FDA-Public Use
  Company Number: TW-ENDO PHARMACEUTICALS INC-2015-000101

PATIENT
  Age: 94 Year
  Sex: Male

DRUGS (4)
  1. PYRAZINAMIDE TABLETS 500 MG [Suspect]
     Active Substance: PYRAZINAMIDE
     Indication: PULMONARY TUBERCULOSIS
     Route: 065
  2. ETHAMBUTOL [Suspect]
     Active Substance: ETHAMBUTOL HYDROCHLORIDE
     Indication: PULMONARY TUBERCULOSIS
     Route: 065
  3. RIFAMPIN. [Suspect]
     Active Substance: RIFAMPIN
     Indication: PULMONARY TUBERCULOSIS
     Route: 065
  4. ISONIAZID. [Suspect]
     Active Substance: ISONIAZID
     Indication: PULMONARY TUBERCULOSIS
     Route: 065

REACTIONS (1)
  - Acute hepatic failure [Recovered/Resolved]
